FAERS Safety Report 20491159 (Version 2)
Quarter: 2022Q1

REPORT INFORMATION
  Report Type: Report from Study
  Country: US (occurrence: US)
  Receive Date: 20220218
  Receipt Date: 20220222
  Transmission Date: 20220423
  Serious: Yes (Other)
  Sender: FDA-Public Use
  Company Number: US-NOVARTISPH-NVSC2021US302420

PATIENT
  Age: 58 Year
  Weight: 83 kg

DRUGS (1)
  1. COSENTYX [Suspect]
     Active Substance: SECUKINUMAB
     Indication: Product used for unknown indication
     Dosage: UNK
     Route: 058
     Dates: start: 20210310, end: 20220202

REACTIONS (2)
  - Disease progression [Not Recovered/Not Resolved]
  - Pain [Not Recovered/Not Resolved]
